FAERS Safety Report 8423998-3 (Version None)
Quarter: 2012Q2

REPORT INFORMATION
  Report Type: 
  Country: None (occurrence: None)
  Receive Date: 20120608
  Receipt Date: 20110418
  Transmission Date: 20120825
  Serious: No
  Sender: FDA-Public Use
  Company Number: US-ASTRAZENECA-2011SE22353

PATIENT
  Age: 71 Year
  Sex: Female

DRUGS (2)
  1. PULMICORT FLEXHALER [Suspect]
     Indication: ASTHMA
     Dosage: 180 UG, 2 PUFFS DAILY
     Route: 055
     Dates: start: 20110201
  2. SUSTAIN EYE DROPS [Concomitant]

REACTIONS (3)
  - EYE IRRITATION [None]
  - DRY EYE [None]
  - LACRIMAL DISORDER [None]
